FAERS Safety Report 23668407 (Version 2)
Quarter: 2024Q1

REPORT INFORMATION
  Report Type: Spontaneous
  Country: CN (occurrence: None)
  Receive Date: 20240325
  Receipt Date: 20240329
  Transmission Date: 20240410
  Serious: Yes (Hospitalization)
  Sender: FDA-Public Use
  Company Number: 2024A058469

PATIENT
  Sex: Female

DRUGS (1)
  1. SYMBICORT [Suspect]
     Active Substance: BUDESONIDE\FORMOTEROL FUMARATE DIHYDRATE
     Indication: Asthma
     Dosage: 60INHALATIONS/BOTTLE, UNKNOWN FREQUENCY UNKNOWN
     Route: 055

REACTIONS (3)
  - Asthma [Recovering/Resolving]
  - Drug dose omission by device [Recovering/Resolving]
  - Device malfunction [Recovering/Resolving]
